FAERS Safety Report 4495282-4 (Version None)
Quarter: 2004Q4

REPORT INFORMATION
  Report Type: 
  Country: None (occurrence: None)
  Receive Date: 20041108
  Receipt Date: 20040826
  Transmission Date: 20050328
  Serious: No
  Sender: FDA-Public Use
  Company Number: US-GLAXOSMITHKLINE-A0523657A

PATIENT
  Sex: Male

DRUGS (6)
  1. AVANDAMET [Suspect]
     Route: 048
  2. CELEBREX [Concomitant]
  3. NEURONTIN [Concomitant]
  4. LIPITOR [Concomitant]
  5. UNKNOWN MEDICATION [Concomitant]
  6. GLYBURIDE [Concomitant]

REACTIONS (2)
  - OEDEMA PERIPHERAL [None]
  - PAIN IN EXTREMITY [None]
